FAERS Safety Report 12113196 (Version 1)
Quarter: 2016Q1

REPORT INFORMATION
  Report Type: Report from Study
  Country: US (occurrence: US)
  Receive Date: 20160225
  Receipt Date: 20160225
  Transmission Date: 20160526
  Serious: Yes (Hospitalization)
  Sender: FDA-Public Use
  Company Number: US-ROCHE-1712962

PATIENT
  Age: 70 Year
  Sex: Male
  Weight: 90.5 kg

DRUGS (7)
  1. OXYCODONE [Concomitant]
     Active Substance: OXYCODONE
     Indication: PAIN
  2. MORPHINE SULFATE. [Concomitant]
     Active Substance: MORPHINE SULFATE
     Route: 048
  3. CRESTOR [Concomitant]
     Active Substance: ROSUVASTATIN CALCIUM
     Dosage: AT BED TIME
     Route: 048
  4. SENOKOT [Concomitant]
     Active Substance: SENNOSIDES
     Route: 048
  5. VISMODEGIB [Suspect]
     Active Substance: VISMODEGIB
     Indication: PROSTATE CANCER METASTATIC
     Route: 048
     Dates: start: 20160105
  6. CALTRATE [Concomitant]
     Active Substance: CALCIUM CARBONATE
     Route: 048
  7. PREDNISONE. [Concomitant]
     Active Substance: PREDNISONE
     Route: 048

REACTIONS (3)
  - Dehydration [Recovered/Resolved]
  - Nausea [Recovered/Resolved]
  - Vomiting [Recovered/Resolved]

NARRATIVE: CASE EVENT DATE: 20160210
